FAERS Safety Report 15453669 (Version 10)
Quarter: 2020Q1

REPORT INFORMATION
  Report Type: Spontaneous
  Country: US (occurrence: US)
  Receive Date: 20181001
  Receipt Date: 20200114
  Transmission Date: 20200409
  Serious: Yes (Other)
  Sender: FDA-Public Use
  Company Number: US-ACTELION-A-US2018-178590

PATIENT
  Age: 45 Year
  Sex: Female
  Weight: 96.15 kg

DRUGS (5)
  1. REVATIO [Concomitant]
     Active Substance: SILDENAFIL CITRATE
  2. VELETRI [Suspect]
     Active Substance: EPOPROSTENOL
     Dosage: 12 NG/KG, PER MIN
     Route: 042
  3. VELETRI [Suspect]
     Active Substance: EPOPROSTENOL
     Dosage: 17 NG/KG, PER MIN
     Route: 042
  4. VELETRI [Suspect]
     Active Substance: EPOPROSTENOL
     Indication: PULMONARY ARTERIAL HYPERTENSION
     Dosage: 40 NG/KG, PER MIN
     Route: 042
  5. SILDENAFIL CITRATE. [Concomitant]
     Active Substance: SILDENAFIL CITRATE
     Dosage: UNK

REACTIONS (42)
  - Syncope [Unknown]
  - Catheter site irritation [Unknown]
  - Complication associated with device [Unknown]
  - Skin irritation [Unknown]
  - Device physical property issue [Unknown]
  - Fall [Unknown]
  - Pain in jaw [Not Recovered/Not Resolved]
  - Flushing [Not Recovered/Not Resolved]
  - Ocular hyperaemia [Unknown]
  - Drug dose omission by device [Unknown]
  - Asthenia [Unknown]
  - Pain in extremity [Not Recovered/Not Resolved]
  - Headache [Not Recovered/Not Resolved]
  - Nausea [Unknown]
  - Arthralgia [Not Recovered/Not Resolved]
  - Dyspnoea [Recovering/Resolving]
  - Hyperaesthesia [Unknown]
  - Biopsy lymph gland [Unknown]
  - Diarrhoea [Not Recovered/Not Resolved]
  - Device leakage [Unknown]
  - Retching [Not Recovered/Not Resolved]
  - Abdominal pain upper [Unknown]
  - Conjunctivitis [Unknown]
  - Weight decreased [Unknown]
  - Biopsy breast [Unknown]
  - Breast tenderness [Unknown]
  - Viral upper respiratory tract infection [Unknown]
  - Feeling hot [Unknown]
  - Hypoaesthesia oral [Unknown]
  - Pruritus [Unknown]
  - Lymphadenopathy [Unknown]
  - Migraine [Unknown]
  - Oropharyngeal pain [Unknown]
  - Breast atrophy [Unknown]
  - Presyncope [Unknown]
  - Toothache [Unknown]
  - Weight increased [Unknown]
  - Dry skin [Unknown]
  - Breast discharge [Unknown]
  - Upper respiratory tract congestion [Unknown]
  - Sinus congestion [Unknown]
  - Vertigo positional [Unknown]

NARRATIVE: CASE EVENT DATE: 20180903
